FAERS Safety Report 4415567-7 (Version None)
Quarter: 2004Q3

REPORT INFORMATION
  Report Type: 
  Country: None (occurrence: None)
  Receive Date: 20040730
  Receipt Date: 20040714
  Transmission Date: 20050211
  Serious: Yes (Death, Life-Threatening, Hospitalization)
  Sender: FDA-Public Use
  Company Number: ATO-04-0658

PATIENT
  Age: 76 Year
  Sex: Female

DRUGS (4)
  1. TRISENOX [Suspect]
     Indication: MULTIPLE MYELOMA
     Dosage: 0.25 MG/KG (0.25 MG/KG), IVI
     Route: 042
     Dates: start: 20040628, end: 20040701
  2. MELPHALAN (MELPHALAN) [Suspect]
     Indication: MULTIPLE MYELOMA
     Dosage: ORAL
     Route: 048
     Dates: start: 20040628, end: 20040701
  3. ASCORBIC ACID [Suspect]
     Indication: MULTIPLE MYELOMA
     Dates: start: 20040628, end: 20040701
  4. ALOXI (ALOXIPRIN) [Concomitant]

REACTIONS (13)
  - ATRIAL FIBRILLATION [None]
  - DISEASE PROGRESSION [None]
  - ELECTROCARDIOGRAM QT SHORTENED [None]
  - ELECTROCARDIOGRAM ST-T CHANGE [None]
  - HAEMATOCRIT DECREASED [None]
  - HAEMOGLOBIN DECREASED [None]
  - HYPERCALCAEMIA [None]
  - HYPOXIA [None]
  - PLATELET COUNT DECREASED [None]
  - PULMONARY HYPERTENSION [None]
  - RIGHT VENTRICULAR FAILURE [None]
  - TRICUSPID VALVE INCOMPETENCE [None]
  - WHITE BLOOD CELL COUNT DECREASED [None]
